FAERS Safety Report 26161039 (Version 1)
Quarter: 2025Q4

REPORT INFORMATION
  Report Type: Spontaneous
  Country: US (occurrence: US)
  Receive Date: 20251216
  Receipt Date: 20251216
  Transmission Date: 20260118
  Serious: No
  Sender: Kenvue
  Company Number: US-KENVUE-20251110368

PATIENT
  Sex: Male

DRUGS (1)
  1. ROGAINE [Suspect]
     Active Substance: MINOXIDIL
     Indication: Product used for unknown indication
     Dosage: USED ROGAINE SOLUTION FOR OVER 20 YEARS
     Route: 065

REACTIONS (2)
  - Application site irritation [Unknown]
  - Application site pruritus [Unknown]
